FAERS Safety Report 20212259 (Version 1)
Quarter: 2021Q4

REPORT INFORMATION
  Report Type: Spontaneous
  Country: CN (occurrence: CN)
  Receive Date: 20211221
  Receipt Date: 20211221
  Transmission Date: 20220303
  Serious: Yes (Life-Threatening, Disabling)
  Sender: FDA-Public Use
  Company Number: CN-FRESENIUS KABI-FK202114139

PATIENT
  Age: 77 Year
  Sex: Female
  Weight: 35 kg

DRUGS (2)
  1. EGG PHOSPHOLIPIDS\GLYCERIN\MEDIUM-CHAIN TRIGLYCERIDES\SOYBEAN OIL [Suspect]
     Active Substance: EGG PHOSPHOLIPIDS\GLYCERIN\MEDIUM-CHAIN TRIGLYCERIDES\SOYBEAN OIL
     Indication: Nutritional supplementation
     Dosage: THE FORM OF ADMIN IS INJECTION AS SOURCES.
     Route: 041
     Dates: start: 20211123, end: 20211123
  2. GLYCINE/ALANINE/SERINE/ASPARTIC ACID/CYSTINE/TYROSINE/LEUCINE/PHENYLAL [Concomitant]
     Indication: Nutritional supplementation
     Route: 041
     Dates: start: 20211123, end: 20211123

REACTIONS (6)
  - Tachycardia [Recovered/Resolved]
  - Pyrexia [Recovered/Resolved]
  - Hyperhidrosis [Recovered/Resolved]
  - Chills [Recovered/Resolved]
  - Nausea [Recovered/Resolved]
  - Hypotension [Recovered/Resolved]

NARRATIVE: CASE EVENT DATE: 20211123
